FAERS Safety Report 23718663 (Version 1)
Quarter: 2024Q2

REPORT INFORMATION
  Report Type: Spontaneous
  Country: US (occurrence: None)
  Receive Date: 20240406
  Receipt Date: 20240406
  Transmission Date: 20240716
  Serious: Yes (Hospitalization)
  Sender: FDA-Public Use
  Company Number: None

PATIENT
  Age: 48 Year
  Sex: Male
  Weight: 94.8 kg

DRUGS (1)
  1. XELODA [Suspect]
     Active Substance: CAPECITABINE
     Dosage: FREQUENCY : DAILY;?
     Route: 048

REACTIONS (6)
  - Diarrhoea [None]
  - Frequent bowel movements [None]
  - Blood pressure increased [None]
  - Enteritis [None]
  - Haemoglobin decreased [None]
  - Gastroenteritis norovirus [None]

NARRATIVE: CASE EVENT DATE: 20240402
